FAERS Safety Report 24191232 (Version 1)
Quarter: 2024Q3

REPORT INFORMATION
  Report Type: Spontaneous
  Country: DE (occurrence: DE)
  Receive Date: 20240808
  Receipt Date: 20240808
  Transmission Date: 20241016
  Serious: Yes (Other)
  Sender: TEVA
  Company Number: DE-EMBRYOTOX-202307295

PATIENT
  Age: 1 Day
  Sex: Male
  Weight: 2.13 kg

DRUGS (4)
  1. DULOXETINE [Suspect]
     Active Substance: DULOXETINE
     Indication: Depression
     Dosage: 60 [MG/D]/ STARTED TWO MONTHS BEFORE ONSET OF PREGNANCY
     Route: 064
     Dates: start: 20230126, end: 20231019
  2. PERTUSSIS VACCINE [Concomitant]
     Active Substance: PERTUSSIS VACCINE
     Indication: Immunisation
     Dosage: APPROXIMATELY GW 32
     Route: 064
  3. HUMAN PAPILLOMAVIRUS VACCINE [Concomitant]
     Active Substance: HUMAN PAPILLOMAVIRUS VACCINE
     Indication: Immunisation
     Dosage: 3RD VACCINATION, HUMAN PAPILLOMAVIRUS VACCINE
     Route: 064
  4. VANCOMYCIN [Concomitant]
     Active Substance: VANCOMYCIN
     Indication: Streptococcal infection
     Route: 064

REACTIONS (2)
  - Small for dates baby [Recovered/Resolved]
  - Foetal exposure during pregnancy [Unknown]

NARRATIVE: CASE EVENT DATE: 20231001
